FAERS Safety Report 6440340-8 (Version None)
Quarter: 2009Q4

REPORT INFORMATION
  Report Type: 
  Country: None (occurrence: None)
  Receive Date: 20091113
  Receipt Date: 20091030
  Transmission Date: 20100525
  Serious: Yes (Other)
  Sender: FDA-Public Use
  Company Number: PHHY2009JP46757

PATIENT
  Age: 53 Year
  Sex: Male

DRUGS (7)
  1. GLEEVEC [Suspect]
     Indication: GASTROINTESTINAL STROMAL TUMOUR
     Dosage: 400 MG DAILY
     Route: 048
     Dates: start: 20060201, end: 20060401
  2. GLEEVEC [Suspect]
     Dosage: 200 MG DAILY
     Route: 048
     Dates: start: 20060801, end: 20060801
  3. GLEEVEC [Suspect]
     Dosage: 100 MG DAILY
     Route: 048
     Dates: start: 20070201, end: 20070201
  4. GLEEVEC [Suspect]
     Dosage: 200 MG DAILY
     Route: 048
     Dates: start: 20070401
  5. PREDNISOLONE [Concomitant]
     Indication: GASTROINTESTINAL STROMAL TUMOUR
     Dosage: 5 MG, UNK
     Dates: start: 20070201
  6. PREDNISOLONE [Concomitant]
     Dosage: 40 MG, UNK
  7. PREDNISOLONE [Concomitant]
     Dosage: 10 MG, UNK

REACTIONS (9)
  - ADRENAL GLAND OPERATION [None]
  - DERMATITIS [None]
  - HYPERSENSITIVITY [None]
  - MALIGNANT NEOPLASM PROGRESSION [None]
  - METASTASES TO ADRENALS [None]
  - PANCREATECTOMY [None]
  - PRURITUS GENERALISED [None]
  - PYREXIA [None]
  - SPLEEN OPERATION [None]
